FAERS Safety Report 5883847-4 (Version None)
Quarter: 2008Q3

REPORT INFORMATION
  Report Type: 
  Country: None (occurrence: None)
  Receive Date: 20080915
  Receipt Date: 20080908
  Transmission Date: 20090109
  Serious: Yes (Other)
  Sender: FDA-Public Use
  Company Number: CA-BRISTOL-MYERS SQUIBB COMPANY-14297493

PATIENT
  Age: 56 Year
  Sex: Female

DRUGS (11)
  1. ORENCIA [Suspect]
     Indication: RHEUMATOID ARTHRITIS
     Dosage: THERAPY DATES:24MAR08,08APR08,21APR08,20MAY08,16JUN08,14JUL08.THERAPY DURATION :Q4
     Route: 042
     Dates: start: 20080324
  2. METHOTREXATE SODIUM [Suspect]
     Dosage: INJ
  3. PREDNISONE TAB [Suspect]
  4. METFORMIN HCL [Concomitant]
  5. ACTOS [Concomitant]
  6. NEXIUM [Concomitant]
  7. COZAAR [Concomitant]
  8. FOLIC ACID [Concomitant]
  9. AMITRIPTYLINE HCL [Concomitant]
  10. CRESTOR [Concomitant]
  11. VENTOLIN [Concomitant]

REACTIONS (2)
  - GASTROENTERITIS VIRAL [None]
  - WEST NILE VIRAL INFECTION [None]
